FAERS Safety Report 5298104-7 (Version None)
Quarter: 2007Q2

REPORT INFORMATION
  Report Type: 
  Country: None (occurrence: None)
  Receive Date: 20070416
  Receipt Date: 20070409
  Transmission Date: 20071010
  Serious: Yes (Other)
  Sender: FDA-Public Use
  Company Number: JP-ELI_LILLY_AND_COMPANY-JP200702005001

PATIENT
  Age: 47 Year
  Sex: Female

DRUGS (3)
  1. HUMACART NPH [Suspect]
     Indication: DIABETES MELLITUS
     Dosage: 4 U, UNK
     Route: 058
     Dates: end: 20070221
  2. HUMACART REGULAR [Suspect]
     Indication: DIABETES MELLITUS
     Route: 058
  3. HUMALOG [Suspect]
     Indication: DIABETES MELLITUS
     Dosage: 22 U, UNK
     Route: 058
     Dates: end: 20070217

REACTIONS (1)
  - LYMPHOEDEMA [None]
